FAERS Safety Report 6370058-1 (Version None)
Quarter: 2009Q3

REPORT INFORMATION
  Report Type: 
  Country: None (occurrence: None)
  Receive Date: 20090923
  Receipt Date: 20090316
  Transmission Date: 20100115
  Serious: No
  Sender: FDA-Public Use
  Company Number: US-ASTRAZENECA-2006UW13992

PATIENT
  Age: 51 Year
  Sex: Female
  Weight: 104.3 kg

DRUGS (10)
  1. SEROQUEL [Suspect]
     Indication: BORDERLINE PERSONALITY DISORDER
     Dosage: 25MG, 100MG, 200MG
     Route: 048
     Dates: start: 19981101, end: 20060101
  2. SEROQUEL [Suspect]
     Indication: ABNORMAL BEHAVIOUR
     Dosage: 25MG, 100MG, 200MG
     Route: 048
     Dates: start: 19981101, end: 20060101
  3. SEROQUEL [Suspect]
     Route: 048
     Dates: start: 20060101, end: 20060601
  4. SEROQUEL [Suspect]
     Route: 048
     Dates: start: 20060101, end: 20060601
  5. PROZAC [Concomitant]
     Dosage: 20-80 MG
  6. PROTONIX [Concomitant]
  7. METFORMIN HCL [Concomitant]
  8. FASTIN [Concomitant]
     Dates: start: 19700101, end: 19820101
  9. THORAZINE [Concomitant]
  10. RITALIN [Concomitant]

REACTIONS (4)
  - BLOOD CHOLESTEROL INCREASED [None]
  - DIABETES MELLITUS [None]
  - SLEEP APNOEA SYNDROME [None]
  - WEIGHT INCREASED [None]
